FAERS Safety Report 4838574-9 (Version None)
Quarter: 2005Q4

REPORT INFORMATION
  Report Type: 
  Country: None (occurrence: None)
  Receive Date: 20051123
  Receipt Date: 20051123
  Transmission Date: 20060501
  Serious: Yes (Hospitalization)
  Sender: FDA-Public Use
  Company Number: None

PATIENT
  Age: 59 Year
  Sex: Male
  Weight: 85.1 kg

DRUGS (9)
  1. SIMVASTATIN [Suspect]
     Indication: HYPERLIPIDAEMIA
     Dosage: 40MG,40MG QD, ORAL
     Route: 048
  2. AMIODARONE HCL [Concomitant]
  3. LANOXIN [Concomitant]
  4. DILTIAZEM HCL [Concomitant]
  5. RANITIDINE HCL [Concomitant]
  6. ATENOLOL [Concomitant]
  7. GEMFIBROZIL [Concomitant]
  8. LISINOPRIL [Concomitant]
  9. ACETAMINOPHEN [Concomitant]

REACTIONS (2)
  - CHROMATURIA [None]
  - RHABDOMYOLYSIS [None]
